FAERS Safety Report 12086494 (Version 1)
Quarter: 2016Q1

REPORT INFORMATION
  Report Type: Spontaneous
  Country: US (occurrence: US)
  Receive Date: 20160217
  Receipt Date: 20160217
  Transmission Date: 20160526
  Serious: No
  Sender: FDA-Public Use
  Company Number: US-ALLERGAN-1500373US

PATIENT
  Sex: Female

DRUGS (2)
  1. RESTASIS [Suspect]
     Active Substance: CYCLOSPORINE
     Indication: PRODUCT USED FOR UNKNOWN INDICATION
     Dosage: 2 GTT, UNK
     Dates: start: 201407
  2. SIMILASAN FOR INFLAMMATION OF THE MOUTH AND THROAT [Concomitant]
     Active Substance: HOMEOPATHICS
     Indication: EYE IRRITATION

REACTIONS (2)
  - Headache [Recovering/Resolving]
  - Eye irritation [Unknown]

NARRATIVE: CASE EVENT DATE: 2014
